FAERS Safety Report 13401743 (Version 2)
Quarter: 2017Q2

REPORT INFORMATION
  Report Type: Report from Study
  Country: MY (occurrence: MY)
  Receive Date: 20170404
  Receipt Date: 20170406
  Transmission Date: 20170830
  Serious: Yes (Death, Hospitalization)
  Sender: FDA-Public Use
  Company Number: PHHO2017MY001189

PATIENT
  Age: 66 Year
  Sex: Female
  Weight: 37.5 kg

DRUGS (2)
  1. LEE011 [Suspect]
     Active Substance: RIBOCICLIB
     Indication: BREAST CANCER
     Dosage: 400 MG, UNK
     Route: 048
     Dates: start: 20160516
  2. COMPARATOR FULVESTRANT [Suspect]
     Active Substance: FULVESTRANT
     Indication: BREAST CANCER
     Dosage: 500 MG, UNK
     Route: 048
     Dates: start: 20160516, end: 20170320

REACTIONS (2)
  - Shock haemorrhagic [Fatal]
  - Breast disorder [Recovered/Resolved]

NARRATIVE: CASE EVENT DATE: 20170115
